FAERS Safety Report 15906029 (Version 1)
Quarter: 2019Q1

REPORT INFORMATION
  Report Type: Report from Study
  Country: GB (occurrence: GB)
  Receive Date: 20190204
  Receipt Date: 20190204
  Transmission Date: 20190417
  Serious: Yes (Other)
  Sender: FDA-Public Use
  Company Number: GB-JNJFOC-20190114678

PATIENT
  Sex: Female

DRUGS (1)
  1. STELARA [Suspect]
     Active Substance: USTEKINUMAB
     Indication: CROHN^S DISEASE
     Route: 058

REACTIONS (7)
  - Enterostomy [Unknown]
  - Dizziness [Unknown]
  - Lower respiratory tract infection [Unknown]
  - Adverse event [Unknown]
  - Tonsillitis [Unknown]
  - Headache [Unknown]
  - Arthralgia [Unknown]
